FAERS Safety Report 8990476 (Version 1)
Quarter: 2012Q4

REPORT INFORMATION
  Report Type: 
  Country: CN (occurrence: CN)
  Receive Date: 20121228
  Receipt Date: 20121228
  Transmission Date: 20130627
  Serious: Yes (Other)
  Sender: FDA-Public Use
  Company Number: CN-ASTRAZENECA-2012SE95104

PATIENT
  Age: 32 Year
  Sex: Female

DRUGS (3)
  1. BUDESONIDE [Suspect]
     Indication: RHINITIS ALLERGIC
     Dosage: 200 UG 3-5 TIMES A DAY
     Route: 055
     Dates: start: 20091104, end: 20091225
  2. BUDESONIDE [Suspect]
     Indication: RHINITIS ALLERGIC
     Dosage: 200 UG 3-5 TIMES A DAY
     Route: 055
     Dates: start: 20100404
  3. LORATADINE [Concomitant]
     Indication: RHINITIS ALLERGIC
     Route: 048
     Dates: start: 20091104

REACTIONS (1)
  - Dysfunctional uterine bleeding [Recovered/Resolved]
